FAERS Safety Report 8274444-4 (Version None)
Quarter: 2012Q2

REPORT INFORMATION
  Report Type: 
  Country: None (occurrence: None)
  Receive Date: 20120411
  Receipt Date: 20120329
  Transmission Date: 20120825
  Serious: Yes (Death, Other)
  Sender: FDA-Public Use
  Company Number: IT-CELGENEUS-083-21880-11060479

PATIENT
  Sex: Female

DRUGS (1)
  1. REVLIMID [Suspect]
     Dosage: 5 MILLIGRAM
     Route: 048
     Dates: start: 20090610, end: 20090617

REACTIONS (4)
  - ACUTE MYOCARDIAL INFARCTION [None]
  - PYREXIA [None]
  - THROMBOCYTOPENIA [None]
  - NEUTROPENIA [None]
